FAERS Safety Report 7671743-1 (Version None)
Quarter: 2011Q3

REPORT INFORMATION
  Report Type: 
  Country: None (occurrence: None)
  Receive Date: 20110809
  Receipt Date: 20110726
  Transmission Date: 20111222
  Serious: Yes (Other)
  Sender: FDA-Public Use
  Company Number: US-RANBAXY-2011RR-46623

PATIENT
  Sex: Male

DRUGS (8)
  1. LEVAQUIN [Suspect]
     Dosage: 500 MG, QD
     Route: 048
     Dates: start: 20020416, end: 20020425
  2. LEVAQUIN [Suspect]
     Indication: BACTERIAL INFECTION
     Dosage: 500 MG, QD
     Route: 048
     Dates: start: 20001110, end: 20001208
  3. LEVAQUIN [Suspect]
     Dosage: 500 MG, QD
     Route: 048
     Dates: start: 20020618, end: 20020627
  4. LEVAQUIN [Suspect]
     Dosage: 500 MG, QD
     Route: 048
     Dates: start: 20050830, end: 20051005
  5. CIPROFLAXACIN [Suspect]
     Indication: ANTIBIOTIC THERAPY
     Route: 065
  6. TEVETEN [Concomitant]
     Indication: BLOOD PRESSURE FLUCTUATION
     Dosage: 25 MG, UNK
     Route: 048
  7. LEVAQUIN [Suspect]
     Dosage: 500 MG, QD
     Route: 048
     Dates: start: 20020917, end: 20020926
  8. LEVAQUIN [Suspect]
     Indication: URINARY TRACT INFECTION
     Dosage: 500 MG, QD
     Route: 048
     Dates: start: 20011029, end: 20011111

REACTIONS (2)
  - MUSCLE RUPTURE [None]
  - TENDON RUPTURE [None]
